FAERS Safety Report 6300535-0 (Version None)
Quarter: 2009Q3

REPORT INFORMATION
  Report Type: 
  Country: None (occurrence: None)
  Receive Date: 20090806
  Receipt Date: 20090227
  Transmission Date: 20100115
  Serious: No
  Sender: FDA-Public Use
  Company Number: US-ABBOTT-09P-163-0560161-00

PATIENT
  Age: 22 Year
  Sex: Male

DRUGS (3)
  1. DEPAKOTE ER [Suspect]
     Indication: CONVULSION
  2. DEPAKOTE ER [Suspect]
     Indication: PERSONALITY DISORDER
  3. XANAX [Concomitant]
     Indication: DRUG USE FOR UNKNOWN INDICATION

REACTIONS (2)
  - BLOOD ALBUMIN DECREASED [None]
  - BLOOD TESTOSTERONE DECREASED [None]
